FAERS Safety Report 19255609 (Version 1)
Quarter: 2021Q2

REPORT INFORMATION
  Report Type: Spontaneous
  Country: GB (occurrence: GB)
  Receive Date: 20210513
  Receipt Date: 20210513
  Transmission Date: 20210717
  Serious: Yes (Disabling)
  Sender: FDA-Public Use
  Company Number: GB-TEVA-2021-GB-1910998

PATIENT
  Age: 58 Year
  Sex: Female

DRUGS (7)
  1. COENZYME Q10 [Concomitant]
     Active Substance: DIETARY SUPPLEMENT\UBIDECARENONE
  2. RIBOFLAVIN [Concomitant]
     Active Substance: RIBOFLAVIN
  3. MAGNESIUM OXIDE. [Concomitant]
     Active Substance: MAGNESIUM OXIDE
  4. OMEGA?3 ACIDS [Concomitant]
     Active Substance: OMEGA-3 FATTY ACIDS
  5. FREMANEZUMAB [Suspect]
     Active Substance: FREMANEZUMAB
     Indication: HEMIPLEGIC MIGRAINE
     Dosage: 225 MG
     Route: 051
     Dates: start: 20210212, end: 20210212
  6. CANNABIDIOL [Concomitant]
     Active Substance: CANNABIDIOL
  7. MULTIVITAMIN [Concomitant]
     Active Substance: VITAMINS

REACTIONS (3)
  - Neck pain [Recovering/Resolving]
  - Hemiplegic migraine [Recovering/Resolving]
  - Constipation [Not Recovered/Not Resolved]

NARRATIVE: CASE EVENT DATE: 20210213
